FAERS Safety Report 22202677 (Version 1)
Quarter: 2023Q2

REPORT INFORMATION
  Report Type: Spontaneous
  Country: US (occurrence: US)
  Receive Date: 20230412
  Receipt Date: 20230412
  Transmission Date: 20230721
  Serious: Yes (Other)
  Sender: FDA-Public Use
  Company Number: US-JNJFOC-20190621957

PATIENT
  Age: 4 Decade
  Sex: Female
  Weight: 40.406 kg

DRUGS (1)
  1. IMODIUM [Suspect]
     Active Substance: LOPERAMIDE HYDROCHLORIDE
     Indication: Bowel movement irregularity
     Route: 065

REACTIONS (3)
  - Choking [Unknown]
  - Vomiting [Unknown]
  - Foreign body in throat [Unknown]

NARRATIVE: CASE EVENT DATE: 19890101
